FAERS Safety Report 10154343 (Version 1)
Quarter: 2014Q2

REPORT INFORMATION
  Report Type: Spontaneous
  Country: US (occurrence: None)
  Receive Date: 20140502
  Receipt Date: 20140502
  Transmission Date: 20141212
  Serious: Yes (Life-Threatening, Hospitalization)
  Sender: FDA-Public Use
  Company Number: DAV-AE-MTX-14-11

PATIENT
  Age: 17 Year
  Sex: Female

DRUGS (5)
  1. METHOTREXATE [Suspect]
     Indication: OSTEOSARCOMA
     Dosage: 7 PREOPERATIVE 12G/M2, IV ?
     Route: 042
  2. IFOSFAMIDE [Concomitant]
  3. ETOPOSIDE [Suspect]
  4. FOLINIC ACID [Suspect]
  5. UROMITEXAN [Suspect]

REACTIONS (9)
  - Deafness [None]
  - Toxic encephalopathy [None]
  - Cerebellar syndrome [None]
  - Tinnitus [None]
  - Haemoglobin decreased [None]
  - Blood creatinine increased [None]
  - Blood urea increased [None]
  - Overdose [None]
  - Lung disorder [None]
